FAERS Safety Report 11448716 (Version 3)
Quarter: 2015Q4

REPORT INFORMATION
  Report Type: Spontaneous
  Country: US (occurrence: US)
  Receive Date: 20150902
  Receipt Date: 20151106
  Transmission Date: 20160304
  Serious: Yes (Other)
  Sender: FDA-Public Use
  Company Number: US-PFIZER INC-2015281017

PATIENT
  Age: 47 Year
  Sex: Male
  Weight: 81 kg

DRUGS (1)
  1. SUTENT [Suspect]
     Active Substance: SUNITINIB MALATE
     Indication: RENAL CANCER
     Dosage: 50 MG, CYCLIC FOR 28 DAYS EVERY 42 DAYS
     Route: 048
     Dates: start: 20141104

REACTIONS (4)
  - Renal impairment [Unknown]
  - Disease progression [Unknown]
  - Renal cancer [Unknown]
  - Constipation [Unknown]
